FAERS Safety Report 8131426-0 (Version None)
Quarter: 2012Q1

REPORT INFORMATION
  Report Type: 
  Country: None (occurrence: None)
  Receive Date: 20120213
  Receipt Date: 20120202
  Transmission Date: 20120608
  Serious: No
  Sender: FDA-Public Use
  Company Number: US-B.I. PHARMACEUTICALS,INC./RIDGEFIELD-2012-BP-02052BP

PATIENT
  Sex: Female

DRUGS (12)
  1. IPRATROPIUM BROMIDE [Concomitant]
     Indication: CHRONIC OBSTRUCTIVE PULMONARY DISEASE
     Route: 055
     Dates: start: 20000101
  2. TOPROL-XL [Concomitant]
     Indication: HYPERTENSION
     Dosage: 100 MG
     Route: 048
     Dates: start: 20110301
  3. SOMA [Concomitant]
     Indication: BACK PAIN
     Dosage: 1400 MG
     Route: 048
     Dates: start: 20030101
  4. LOTREL [Concomitant]
     Indication: HYPERTENSION
     Dosage: 40 MG
     Route: 048
     Dates: start: 20070101
  5. ALBUTEROL [Concomitant]
     Indication: CHRONIC OBSTRUCTIVE PULMONARY DISEASE
     Route: 055
     Dates: start: 20000101
  6. VICODIN [Concomitant]
     Indication: NEUROPATHY PERIPHERAL
  7. GUAIFENESIN [Concomitant]
     Indication: CHRONIC OBSTRUCTIVE PULMONARY DISEASE
     Route: 048
     Dates: start: 19750101
  8. VICODIN [Concomitant]
     Indication: BACK PAIN
     Route: 048
     Dates: start: 20070101
  9. XANAX [Concomitant]
     Indication: ANXIETY
     Dosage: 1.5 MG
     Route: 048
     Dates: start: 20000101
  10. LEVOTHYROXINE SODIUM [Concomitant]
     Indication: THYROIDECTOMY
     Dosage: 112 MCG
     Route: 048
     Dates: start: 20070101
  11. SOMA [Concomitant]
     Indication: NEUROPATHY PERIPHERAL
  12. COMBIVENT [Suspect]
     Indication: CHRONIC OBSTRUCTIVE PULMONARY DISEASE
     Route: 055
     Dates: start: 20010101

REACTIONS (1)
  - INCREASED UPPER AIRWAY SECRETION [None]
